FAERS Safety Report 9371885 (Version 1)
Quarter: 2013Q2

REPORT INFORMATION
  Report Type: Report from Study
  Country: US (occurrence: US)
  Receive Date: 20130627
  Receipt Date: 20130627
  Transmission Date: 20140414
  Serious: Yes (Death)
  Sender: FDA-Public Use
  Company Number: US-MYLANLABS-2012S1009523

PATIENT
  Age: 84 Year
  Sex: Male

DRUGS (10)
  1. CLOZAPINE TABLETS [Suspect]
     Indication: DEMENTIA
     Route: 048
     Dates: start: 20111117, end: 201112
  2. CLOZAPINE TABLETS [Suspect]
     Indication: AGITATION
     Route: 048
     Dates: start: 20111117, end: 201112
  3. CLOZAPINE TABLETS [Suspect]
     Indication: HALLUCINATION
     Route: 048
     Dates: start: 20111117, end: 201112
  4. CLOZAPINE TABLETS [Suspect]
     Indication: DEMENTIA
     Route: 048
     Dates: start: 20111117, end: 201112
  5. CLOZAPINE TABLETS [Suspect]
     Indication: AGITATION
     Route: 048
     Dates: start: 20111117, end: 201112
  6. CLOZAPINE TABLETS [Suspect]
     Indication: HALLUCINATION
     Route: 048
     Dates: start: 20111117, end: 201112
  7. METOPROLOL [Concomitant]
  8. CARBIDOPA LEVODOPA [Concomitant]
  9. ASPIRIN [Concomitant]
  10. LOPERAMIDE [Concomitant]

REACTIONS (2)
  - General physical health deterioration [Fatal]
  - Dementia [Fatal]
